FAERS Safety Report 7901841-6 (Version None)
Quarter: 2011Q4

REPORT INFORMATION
  Report Type: 
  Country: None (occurrence: None)
  Receive Date: 20111108
  Receipt Date: 20111031
  Transmission Date: 20120403
  Serious: Yes (Hospitalization)
  Sender: FDA-Public Use
  Company Number: FR-SANOFI-AVENTIS-2011SA072785

PATIENT
  Age: 72 Year
  Sex: Male
  Weight: 72 kg

DRUGS (6)
  1. AMIODARONE HCL [Concomitant]
     Dates: start: 19970101
  2. CASODEX [Suspect]
     Indication: PROSTATE CANCER
     Route: 048
     Dates: start: 20080808, end: 20080906
  3. LEUPROLIDE ACETATE [Suspect]
     Indication: PROSTATE CANCER
     Dosage: FREQUENCY: ONCE EVERY THREE MONTHS
     Route: 058
     Dates: start: 20070316, end: 20081104
  4. ACTONEL [Concomitant]
     Dates: start: 19991001
  5. OROCAL [Concomitant]
     Dates: start: 20030101
  6. LESCOL [Concomitant]
     Dates: start: 19970101

REACTIONS (1)
  - URINARY RETENTION [None]
